FAERS Safety Report 6071790-X (Version None)
Quarter: 2009Q1

REPORT INFORMATION
  Report Type: 
  Country: None (occurrence: None)
  Receive Date: 20090210
  Receipt Date: 20090130
  Transmission Date: 20090719
  Serious: Yes (Other)
  Sender: FDA-Public Use
  Company Number: PHHY2009CA03709

PATIENT
  Sex: Male

DRUGS (1)
  1. ZOMETA [Suspect]
     Indication: RENAL CELL CARCINOMA
     Dosage: 4 MG EVERY 12 WEEKS
     Route: 042
     Dates: start: 20061101

REACTIONS (7)
  - BLINDNESS UNILATERAL [None]
  - BLOOD ALBUMIN DECREASED [None]
  - BLOOD CALCIUM DECREASED [None]
  - BLOOD SODIUM DECREASED [None]
  - CATARACT [None]
  - GLAUCOMA [None]
  - HAEMOGLOBIN DECREASED [None]
